FAERS Safety Report 16660717 (Version 1)
Quarter: 2019Q3

REPORT INFORMATION
  Report Type: Spontaneous
  Country: AU (occurrence: AU)
  Receive Date: 20190802
  Receipt Date: 20190802
  Transmission Date: 20191004
  Serious: Yes (Other)
  Sender: FDA-Public Use
  Company Number: AU-ROCHE-2366030

PATIENT
  Age: 53 Year
  Sex: Female
  Weight: 170 kg

DRUGS (6)
  1. MYCOPHENOLATE MOFETIL. [Suspect]
     Active Substance: MYCOPHENOLATE MOFETIL
     Indication: NEUROSARCOIDOSIS
     Route: 065
  2. METHOTREXATE. [Concomitant]
     Active Substance: METHOTREXATE
     Indication: OFF LABEL USE
  3. PREDNISOLONE. [Concomitant]
     Active Substance: PREDNISOLONE
     Indication: OFF LABEL USE
  4. PREDNISOLONE. [Concomitant]
     Active Substance: PREDNISOLONE
     Indication: NEUROSARCOIDOSIS
     Dosage: ONGOING
     Route: 065
  5. MYCOPHENOLATE MOFETIL. [Suspect]
     Active Substance: MYCOPHENOLATE MOFETIL
     Indication: OFF LABEL USE
  6. METHOTREXATE. [Concomitant]
     Active Substance: METHOTREXATE
     Indication: NEUROSARCOIDOSIS
     Dosage: ONGOING
     Route: 058

REACTIONS (14)
  - Intentional product use issue [Unknown]
  - Treatment failure [Unknown]
  - Seizure [Unknown]
  - Depression [Unknown]
  - Cushingoid [Unknown]
  - Ataxia [Unknown]
  - Mental fatigue [Unknown]
  - Fatigue [Unknown]
  - Type 2 diabetes mellitus [Unknown]
  - Neuralgia [Unknown]
  - Off label use [Unknown]
  - Weight increased [Unknown]
  - Myopathy [Unknown]
  - Muscular weakness [Unknown]
